FAERS Safety Report 4596264-4 (Version None)
Quarter: 2005Q1

REPORT INFORMATION
  Report Type: 
  Country: None (occurrence: None)
  Receive Date: 20050302
  Receipt Date: 20050218
  Transmission Date: 20050727
  Serious: Yes (Hospitalization)
  Sender: FDA-Public Use
  Company Number: US-KINGPHARMUSA00001-K200500250

PATIENT
  Age: 59 Year
  Sex: Male

DRUGS (19)
  1. LORABID [Suspect]
     Indication: URINARY TRACT INFECTION
     Dosage: 400 MG, UNK
     Dates: start: 20040301, end: 20040310
  2. LOCERYL [Concomitant]
     Dosage: 5 %, UNK
  3. INOTYOL [Concomitant]
  4. DULCOLAX [Concomitant]
     Dosage: 10 MG, UNK
  5. KLYX [Concomitant]
  6. EGAZIL DURETTER [Concomitant]
     Dosage: .2 MG, UNK
  7. C-VIMIN [Concomitant]
     Dosage: 1 G, UNK
  8. LAXOBERAL ^BOEHRINGER INGELHEIM^ [Concomitant]
     Dosage: 7.5 MG/ML, UNK
     Route: 048
  9. HIPREX [Concomitant]
     Dosage: 1 G, UNK
     Route: 048
  10. EMOVAT [Concomitant]
     Dosage: .05 %, UNK
  11. BAKLOFEN [Concomitant]
     Dosage: 10 MG, UNK
  12. FLUDENT [Concomitant]
     Dosage: .75 MG, UNK
  13. MADOPARK [Concomitant]
  14. HYDROCORTISONE [Concomitant]
     Dosage: 1 %, UNK
  15. DIMETIKON [Concomitant]
     Dosage: 200 MG, UNK
  16. NEURONTIN [Concomitant]
     Dosage: 300 MG, UNK
  17. CARESS [Concomitant]
     Dosage: 5 %, UNK
  18. MOVICOL [Concomitant]
  19. PROPYLESS [Concomitant]
     Dosage: 20 %, UNK

REACTIONS (8)
  - BLOOD CREATINE PHOSPHOKINASE INCREASED [None]
  - CONVULSION [None]
  - DYSTONIA [None]
  - MUSCLE RIGIDITY [None]
  - MYOGLOBIN BLOOD INCREASED [None]
  - PARKINSONISM [None]
  - RASH [None]
  - TONGUE DISORDER [None]
